FAERS Safety Report 13289857 (Version 1)
Quarter: 2017Q1

REPORT INFORMATION
  Report Type: Spontaneous
  Country: US (occurrence: US)
  Receive Date: 20170302
  Receipt Date: 20170302
  Transmission Date: 20170428
  Serious: Yes (Other)
  Sender: FDA-Public Use
  Company Number: US-DEPOMED, INC.-US-2016DEP009328

PATIENT

DRUGS (1)
  1. GRALISE [Suspect]
     Active Substance: GABAPENTIN
     Indication: PAIN
     Dosage: 1800 MG, QD [PRESCRIBED FOR 90 DAYS]
     Route: 048
     Dates: start: 20151208

REACTIONS (3)
  - Depression [Unknown]
  - Suicidal ideation [Unknown]
  - Drug ineffective [Unknown]
